FAERS Safety Report 4345833-5 (Version None)
Quarter: 2004Q2

REPORT INFORMATION
  Report Type: 
  Country: None (occurrence: None)
  Receive Date: 20040423
  Receipt Date: 20040423
  Transmission Date: 20050107
  Serious: Yes (Hospitalization)
  Sender: FDA-Public Use
  Company Number: None

PATIENT
  Sex: Female

DRUGS (3)
  1. TAXOL [Suspect]
     Dosage: 40 MG/M2 IV  Q WK  X 6
     Route: 042
     Dates: start: 20040218, end: 20040329
  2. GEMZAR [Suspect]
     Indication: PANCREATIC CARCINOMA
     Dosage: 75 MG/M2 IV Q WK X 6
     Route: 042
     Dates: start: 20040218, end: 20040329
  3. TARCEVA [Suspect]
     Dosage: 75 MG/D /PO THEN DECREASED 25 MG /D/PO
     Route: 048
     Dates: start: 20040218, end: 20040220

REACTIONS (5)
  - CHILLS [None]
  - DIARRHOEA [None]
  - ENTERITIS [None]
  - PYREXIA [None]
  - VIRAL INFECTION [None]
